FAERS Safety Report 7883586-4 (Version None)
Quarter: 2011Q4

REPORT INFORMATION
  Report Type: 
  Country: None (occurrence: None)
  Receive Date: 20111102
  Receipt Date: 20100614
  Transmission Date: 20120403
  Serious: No
  Sender: FDA-Public Use
  Company Number: US-BAYER-201026075NA

PATIENT
  Sex: Male

DRUGS (2)
  1. METHYLPREDNISOLONE [Concomitant]
     Indication: ACUTE SINUSITIS
     Dosage: UNK
  2. AVELOX [Suspect]
     Indication: ACUTE SINUSITIS
     Dosage: UNK

REACTIONS (1)
  - TENDONITIS [None]
